FAERS Safety Report 13172504 (Version 2)
Quarter: 2017Q1

REPORT INFORMATION
  Report Type: Report from Study
  Country: NL (occurrence: NL)
  Receive Date: 20170201
  Receipt Date: 20170321
  Transmission Date: 20170428
  Serious: Yes (Other)
  Sender: FDA-Public Use
  Company Number: PHHY2017NL011685

PATIENT
  Age: 21 Year
  Sex: Female
  Weight: 53.1 kg

DRUGS (4)
  1. ILARIS [Suspect]
     Active Substance: CANAKINUMAB
     Indication: CHRONIC INFANTILE NEUROLOGICAL CUTANEOUS AND ARTICULAR SYNDROME
     Dosage: 150 MG, (EVERY 4 WEEKS)
     Route: 058
     Dates: start: 201312
  2. ILARIS [Suspect]
     Active Substance: CANAKINUMAB
     Dosage: 2 PIECES ONCE, EVERY 4 WEEKS
     Route: 058
     Dates: start: 20161227
  3. ETHINYLESTRADIOL/LEVONORGESTREL A [Concomitant]
     Indication: PRODUCT USED FOR UNKNOWN INDICATION
     Dosage: UNK (30/150 MG DURING 3 OF 4 WEEKS)
     Route: 048
  4. ILARIS [Suspect]
     Active Substance: CANAKINUMAB
     Dosage: 2 PIECES ONCE, EVERY 4 WEEKS
     Route: 058
     Dates: start: 20170124

REACTIONS (2)
  - Cough [Unknown]
  - Respiratory tract infection [Unknown]

NARRATIVE: CASE EVENT DATE: 201611
